FAERS Safety Report 7960570-3 (Version None)
Quarter: 2011Q4

REPORT INFORMATION
  Report Type: 
  Country: None (occurrence: None)
  Receive Date: 20111206
  Receipt Date: 20111031
  Transmission Date: 20120403
  Serious: Yes (Hospitalization)
  Sender: FDA-Public Use
  Company Number: DE-ALLERGAN-1112650US

PATIENT
  Sex: Female

DRUGS (1)
  1. LUMIGAN [Suspect]
     Indication: GLAUCOMA
     Dosage: UNK
     Dates: start: 20110908, end: 20110917

REACTIONS (4)
  - SINOATRIAL BLOCK [None]
  - TACHYCARDIA [None]
  - ANXIETY [None]
  - CHRONOTROPIC INCOMPETENCE [None]
